FAERS Safety Report 7068192-6 (Version None)
Quarter: 2010Q4

REPORT INFORMATION
  Report Type: 
  Country: None (occurrence: None)
  Receive Date: 20101028
  Receipt Date: 20101019
  Transmission Date: 20110411
  Serious: Yes (Hospitalization)
  Sender: FDA-Public Use
  Company Number: JP-ROCHE-732426

PATIENT
  Sex: Female

DRUGS (9)
  1. AVASTIN [Suspect]
     Indication: COLON CANCER METASTATIC
     Route: 041
     Dates: start: 20100716, end: 20100924
  2. FLUOROURACIL [Suspect]
     Indication: COLON CANCER METASTATIC
     Dosage: NOTE: DOSAGE IS UNCERTAIN. INTRAVENOUS DRIP.
     Route: 041
     Dates: start: 20100507, end: 20100101
  3. FLUOROURACIL [Suspect]
     Dosage: NOTE: DOSAGE IS UNCERTAIN.  FORM: INTRAVENOUS BOLUS.
     Route: 041
  4. FLUOROURACIL [Suspect]
     Dosage: DOSAGE IS UNCERTAIN. ROUTE: INTRAVENOUS DRIP.
     Route: 041
     Dates: start: 20100716, end: 20100901
  5. FLUOROURACIL [Suspect]
     Dosage: ROUTE: INTRAVENOUS BOLUS.STOP DATE: 24 SEPTEMBER 2010.
     Route: 041
     Dates: end: 20100924
  6. ELPLAT [Suspect]
     Indication: COLON CANCER METASTATIC
     Dosage: NOTE: DOSAGE IS UNCERTAIN.
     Route: 041
     Dates: start: 20100507, end: 20100101
  7. ELPLAT [Suspect]
     Route: 041
     Dates: start: 20100716, end: 20100924
  8. LEUCOVORIN CALCIUM [Suspect]
     Indication: COLON CANCER METASTATIC
     Dosage: NOTE: DOSAGE IS UNCERTAIN.
     Route: 041
     Dates: start: 20100507, end: 20100101
  9. LEUCOVORIN CALCIUM [Suspect]
     Dosage: DOSAGE IS UNCERTAIN.
     Route: 041
     Dates: start: 20100716, end: 20100924

REACTIONS (3)
  - DUODENAL PERFORATION [None]
  - NEUTROPHIL COUNT DECREASED [None]
  - PERITONITIS [None]
